FAERS Safety Report 6955518-4 (Version None)
Quarter: 2010Q3

REPORT INFORMATION
  Report Type: 
  Country: None (occurrence: None)
  Receive Date: 20100830
  Receipt Date: 20100816
  Transmission Date: 20110219
  Serious: No
  Sender: FDA-Public Use
  Company Number: US-B.I. PHARMACEUTICALS,INC./RIDGEFIELD-2010-BP-09288BP

PATIENT
  Age: 61 Year
  Sex: Male

DRUGS (1)
  1. VIRAMUNE [Suspect]
     Route: 048

REACTIONS (4)
  - ADVERSE DRUG REACTION [None]
  - DRUG INEFFECTIVE [None]
  - FEELING ABNORMAL [None]
  - NONSPECIFIC REACTION [None]
